FAERS Safety Report 4551573-X (Version None)
Quarter: 2005Q1

REPORT INFORMATION
  Report Type: 
  Country: None (occurrence: None)
  Receive Date: 20050111
  Receipt Date: 20041231
  Transmission Date: 20050727
  Serious: Yes (Death)
  Sender: FDA-Public Use
  Company Number: US-2004-037327

PATIENT
  Age: 56 Year
  Sex: Female

DRUGS (1)
  1. BETASERON [Suspect]
     Dosage: EVERY 2D, SUBCUTANEOUS
     Route: 058
     Dates: start: 20030310

REACTIONS (1)
  - DEATH [None]
